FAERS Safety Report 10509071 (Version 1)
Quarter: 2014Q4

REPORT INFORMATION
  Report Type: Spontaneous
  Country: IT (occurrence: IT)
  Receive Date: 20141009
  Receipt Date: 20141009
  Transmission Date: 20150528
  Serious: Yes (Life-Threatening)
  Sender: FDA-Public Use
  Company Number: IT-TEVA-513385ISR

PATIENT
  Age: 59 Year
  Sex: Male
  Weight: 89 kg

DRUGS (2)
  1. CEFTRIAXONE RATIOPHARM [Suspect]
     Active Substance: CEFTRIAXONE
     Indication: ANTIBIOTIC PROPHYLAXIS
     Dosage: POWDER FOR SOLUTION FOR INFUSION
  2. LASIX [Concomitant]
     Active Substance: FUROSEMIDE
     Indication: CARDIAC FAILURE
     Route: 042

REACTIONS (6)
  - Dyspnoea [Recovered/Resolved]
  - Vasoconstriction [Recovered/Resolved]
  - Infusion related reaction [Recovered/Resolved]
  - Agitation [Recovered/Resolved]
  - Raynaud^s phenomenon [Recovered/Resolved]
  - Tremor [Recovered/Resolved]

NARRATIVE: CASE EVENT DATE: 20140918
